FAERS Safety Report 5042810-6 (Version None)
Quarter: 2006Q2

REPORT INFORMATION
  Report Type: 
  Country: None (occurrence: None)
  Receive Date: 20060627
  Receipt Date: 20060615
  Transmission Date: 20061013
  Serious: No
  Sender: FDA-Public Use
  Company Number: 226339

PATIENT
  Sex: Male

DRUGS (5)
  1. MABTHERA (RITUXIMAB) CONC FOR SOLUTION FOR INSUSION [Suspect]
     Indication: NON-HODGKIN'S LYMPHOMA
     Dosage: Q2W, INTRAVENOUS
     Route: 042
     Dates: start: 20060101
  2. CYCLOPHOSPHAMIDE [Concomitant]
  3. DOXORUBICIN HCL [Concomitant]
  4. VINCRISTINE [Concomitant]
  5. PREDNSIONE (PREDNISONE) [Concomitant]

REACTIONS (1)
  - PLEURAL EFFUSION [None]
